FAERS Safety Report 4791869-X (Version None)
Quarter: 2005Q4

REPORT INFORMATION
  Report Type: 
  Country: None (occurrence: None)
  Receive Date: 20051005
  Receipt Date: 20050929
  Transmission Date: 20060501
  Serious: Yes (Other)
  Sender: FDA-Public Use
  Company Number: 2005RR-00823

PATIENT
  Age: 30 Hour
  Sex: Male
  Weight: 3 kg

DRUGS (2)
  1. FLUOXETINE [Suspect]
     Indication: DEPRESSION
     Dosage: 30 MG, QD, TRANSPLACENTAL
     Route: 064
  2. ELTROXIN [Concomitant]

REACTIONS (4)
  - CARDIAC MURMUR [None]
  - DRUG EXPOSURE DURING PREGNANCY [None]
  - ELECTROCARDIOGRAM QT CORRECTED INTERVAL PROLONGED [None]
  - NEONATAL DISORDER [None]
